FAERS Safety Report 7994141-X (Version None)
Quarter: 2011Q4

REPORT INFORMATION
  Report Type: 
  Country: None (occurrence: None)
  Receive Date: 20111220
  Receipt Date: 20111208
  Transmission Date: 20120403
  Serious: Yes (Hospitalization, Other)
  Sender: FDA-Public Use
  Company Number: US-ELI_LILLY_AND_COMPANY-US201112002677

PATIENT
  Sex: Male

DRUGS (2)
  1. LANTUS [Concomitant]
     Dosage: 100 U, BID
  2. HUMALOG [Suspect]
     Indication: DIABETES MELLITUS
     Dosage: 10 U, OTHER

REACTIONS (2)
  - HOSPITALISATION [None]
  - HYPERGLYCAEMIA [None]
